FAERS Safety Report 6807808-3 (Version None)
Quarter: 2010Q2

REPORT INFORMATION
  Report Type: 
  Country: None (occurrence: None)
  Receive Date: 20100629
  Receipt Date: 20081211
  Transmission Date: 20101027
  Serious: No
  Sender: FDA-Public Use
  Company Number: US-PFIZER INC-2008152964

PATIENT
  Sex: Male
  Weight: 74.8 kg

DRUGS (3)
  1. VIAGRA [Suspect]
     Indication: ERECTILE DYSFUNCTION
     Dosage: 50 MG, AS NEEDED
  2. MOTRIN [Concomitant]
     Dosage: UNK
  3. STATINS [Concomitant]
     Dosage: UNK

REACTIONS (2)
  - BACK PAIN [None]
  - HEADACHE [None]
